FAERS Safety Report 9461351 (Version 1)
Quarter: 2013Q3

REPORT INFORMATION
  Report Type: Spontaneous
  Country: US (occurrence: None)
  Receive Date: 20130814
  Receipt Date: 20130814
  Transmission Date: 20140515
  Serious: Yes (Other)
  Sender: FDA-Public Use
  Company Number: None

PATIENT
  Age: 54 Year
  Sex: Female
  Weight: 50.8 kg

DRUGS (7)
  1. PREMARIN [Suspect]
     Indication: VULVOVAGINAL DRYNESS
     Route: 067
     Dates: start: 20130803, end: 20130803
  2. ATENOLOL [Concomitant]
  3. ASPIRIN [Concomitant]
  4. CALCIUM [Concomitant]
  5. VITAMIN K [Concomitant]
  6. B-100 [Concomitant]
  7. ACIDOPHILUS [Suspect]

REACTIONS (11)
  - Vulvovaginal burning sensation [None]
  - Feeling abnormal [None]
  - Nausea [None]
  - Rash [None]
  - Urticaria [None]
  - Fatigue [None]
  - Chest pain [None]
  - Lip dry [None]
  - Flushing [None]
  - Abdominal pain lower [None]
  - Drug prescribing error [None]
